FAERS Safety Report 13419150 (Version 2)
Quarter: 2017Q4

REPORT INFORMATION
  Report Type: Spontaneous
  Country: US (occurrence: US)
  Receive Date: 20170407
  Receipt Date: 20171107
  Transmission Date: 20180320
  Serious: Yes (Other)
  Sender: FDA-Public Use
  Company Number: US-JNJFOC-20170319698

PATIENT
  Age: 18 Year
  Sex: Male

DRUGS (15)
  1. RISPERDAL [Suspect]
     Active Substance: RISPERIDONE
     Indication: ABNORMAL BEHAVIOUR
     Dosage: VARYING DOSES OF 0.5, 1 MG, 2 MG AND 3 MG
     Route: 048
     Dates: start: 19991008, end: 20080901
  2. RISPERDAL [Suspect]
     Active Substance: RISPERIDONE
     Indication: ABNORMAL BEHAVIOUR
     Dosage: VARYING DOSE OF 1MG AND 2MG
     Route: 048
     Dates: start: 20101202, end: 20110303
  3. RISPERIDONE. [Suspect]
     Active Substance: RISPERIDONE
     Indication: ANGELMAN^S SYNDROME
     Dosage: VARYING DOSE OF 1MG AND 2MG
     Route: 048
     Dates: start: 20081212, end: 20100407
  4. RISPERIDONE. [Suspect]
     Active Substance: RISPERIDONE
     Indication: ABNORMAL BEHAVIOUR
     Route: 048
     Dates: start: 19991008
  5. SEROQUEL [Suspect]
     Active Substance: QUETIAPINE FUMARATE
     Indication: PRODUCT USED FOR UNKNOWN INDICATION
     Route: 065
  6. DEPAKOTE [Suspect]
     Active Substance: DIVALPROEX SODIUM
     Indication: PRODUCT USED FOR UNKNOWN INDICATION
     Route: 065
     Dates: end: 201502
  7. RISPERDAL [Suspect]
     Active Substance: RISPERIDONE
     Indication: ABNORMAL BEHAVIOUR
     Route: 048
     Dates: end: 20131014
  8. RISPERIDONE. [Suspect]
     Active Substance: RISPERIDONE
     Indication: ABNORMAL BEHAVIOUR
     Route: 048
     Dates: start: 20100515, end: 20131014
  9. RISPERIDONE. [Suspect]
     Active Substance: RISPERIDONE
     Indication: ANGELMAN^S SYNDROME
     Route: 048
     Dates: start: 20100515, end: 20131014
  10. RISPERIDONE. [Suspect]
     Active Substance: RISPERIDONE
     Indication: ANGELMAN^S SYNDROME
     Route: 048
     Dates: start: 19991008
  11. RISPERDAL [Suspect]
     Active Substance: RISPERIDONE
     Indication: ANGELMAN^S SYNDROME
     Dosage: VARYING DOSE OF 1MG AND 2MG
     Route: 048
     Dates: start: 20101202, end: 20110303
  12. RISPERDAL [Suspect]
     Active Substance: RISPERIDONE
     Indication: ANGELMAN^S SYNDROME
     Route: 048
     Dates: end: 20131014
  13. RISPERDAL [Suspect]
     Active Substance: RISPERIDONE
     Indication: ANGELMAN^S SYNDROME
     Dosage: VARYING DOSES OF 0.5, 1 MG, 2 MG AND 3 MG
     Route: 048
     Dates: start: 19991008, end: 20080901
  14. RISPERIDONE. [Suspect]
     Active Substance: RISPERIDONE
     Indication: ABNORMAL BEHAVIOUR
     Dosage: VARYING DOSE OF 1MG AND 2MG
     Route: 048
     Dates: start: 20081212, end: 20100407
  15. RISPERIDONE. [Suspect]
     Active Substance: RISPERIDONE
     Indication: PRODUCT USED FOR UNKNOWN INDICATION
     Route: 048

REACTIONS (3)
  - Obesity [Unknown]
  - Gynaecomastia [Unknown]
  - Emotional disorder [Unknown]

NARRATIVE: CASE EVENT DATE: 200504
